FAERS Safety Report 4521668-5 (Version None)
Quarter: 2004Q4

REPORT INFORMATION
  Report Type: 
  Country: None (occurrence: None)
  Receive Date: 20041206
  Receipt Date: 20041119
  Transmission Date: 20050328
  Serious: Yes (Life-Threatening)
  Sender: FDA-Public Use
  Company Number: 2004AP05580

PATIENT
  Age: 56 Year
  Sex: Male
  Weight: 57 kg

DRUGS (10)
  1. TENORMIN [Suspect]
     Indication: CARDIAC FAILURE CONGESTIVE
     Dosage: 25 MG DAILY PO
     Route: 048
     Dates: start: 20040901, end: 20041023
  2. CARDENALIN [Suspect]
     Indication: CARDIAC FAILURE CONGESTIVE
     Dosage: 2 MG DAILY PO
     Route: 047
     Dates: start: 20040801, end: 20041023
  3. DIOVAN [Concomitant]
  4. CEROCRAL [Concomitant]
  5. VALERIN [Concomitant]
  6. CONIEL [Concomitant]
  7. ALFAROL [Concomitant]
  8. PANALDINE [Concomitant]
  9. CALTAN [Concomitant]
  10. PARIET [Concomitant]

REACTIONS (5)
  - BRADYCARDIA [None]
  - CARDIAC FAILURE CONGESTIVE [None]
  - CONDITION AGGRAVATED [None]
  - DRUG EFFECT DECREASED [None]
  - HAEMODIALYSIS [None]
